FAERS Safety Report 7180440-0 (Version None)
Quarter: 2010Q4

REPORT INFORMATION
  Report Type: 
  Country: None (occurrence: None)
  Receive Date: 20101221
  Receipt Date: 20101214
  Transmission Date: 20110411
  Serious: Yes (Hospitalization, Other)
  Sender: FDA-Public Use
  Company Number: GB-B.I. PHARMACEUTICALS,INC./RIDGEFIELD-2010-UK-01089UK

PATIENT
  Age: 82 Year
  Sex: Female
  Weight: 54.2 kg

DRUGS (8)
  1. PRADAXA [Suspect]
     Indication: THROMBOSIS PROPHYLAXIS
     Dosage: 150 MG
     Route: 048
     Dates: start: 20101026, end: 20101029
  2. AMLODIPINE [Concomitant]
     Dosage: 5 MG
  3. ASPIRIN [Concomitant]
     Dosage: 75 MG
  4. BETNESOL-N [Concomitant]
  5. DEVILS CLAW [Concomitant]
  6. DOXAZOSIN [Concomitant]
     Dosage: 2 MG
  7. GARLIC [Concomitant]
  8. ROSE HIP [Concomitant]

REACTIONS (11)
  - ATRIAL FIBRILLATION [None]
  - DISCOMFORT [None]
  - DYSPEPSIA [None]
  - GASTROINTESTINAL INFLAMMATION [None]
  - HAEMATOCHEZIA [None]
  - HEART RATE INCREASED [None]
  - INFLAMMATION [None]
  - INTESTINAL DILATATION [None]
  - LARGE INTESTINAL ULCER [None]
  - NAUSEA [None]
  - PAIN [None]
